FAERS Safety Report 6278468-8 (Version None)
Quarter: 2009Q3

REPORT INFORMATION
  Report Type: 
  Country: None (occurrence: None)
  Receive Date: 20090721
  Receipt Date: 20090708
  Transmission Date: 20100115
  Serious: Yes (Other)
  Sender: FDA-Public Use
  Company Number: PAR_03081_2009

PATIENT
  Age: 30 Year
  Sex: Female

DRUGS (4)
  1. IBUPROFENO (IBUPROFENO - IBUPROFEN) (NOT SPECIFIED) [Suspect]
     Indication: DRUG USE FOR UNKNOWN INDICATION
     Dosage: (DF ORAL)
     Route: 048
     Dates: start: 20070101
  2. MELIANE (MELIANE) (NOT SPECIFIED) [Suspect]
     Indication: DRUG USE FOR UNKNOWN INDICATION
     Dosage: (DF ORAL)
     Route: 048
     Dates: start: 20070101
  3. AVONEX [Suspect]
     Indication: MULTIPLE SCLEROSIS
     Dosage: (DF SUBCUTANEOUS)
     Route: 058
     Dates: start: 20020601
  4. DOBUPAL (DOBUPAL RETARD - VENLAFAXINE HYDROCHLORIDE) (NOT SPECIFIED) [Suspect]
     Indication: DECREASED APPETITE
     Dosage: (DF ORAL)
     Route: 048
     Dates: start: 20070101

REACTIONS (1)
  - COLITIS ISCHAEMIC [None]
